FAERS Safety Report 8414951-4 (Version None)
Quarter: 2012Q2

REPORT INFORMATION
  Report Type: 
  Country: None (occurrence: None)
  Receive Date: 20120601
  Receipt Date: 20120601
  Transmission Date: 20120825
  Serious: Yes (Other)
  Sender: FDA-Public Use
  Company Number: None

PATIENT
  Age: 64 Year
  Sex: Male
  Weight: 75 kg

DRUGS (2)
  1. ZOLPIDEM TARTRATE [Suspect]
     Indication: SLEEP DISORDER
     Dosage: 30 TABLETS NIGHT TIME FOR SLEEP PO 32 TABLETS TAKEN
     Route: 048
  2. ZOLPIDEM TARTRATE [Suspect]
     Indication: TINNITUS
     Dosage: 30 TABLETS NIGHT TIME FOR SLEEP PO 32 TABLETS TAKEN
     Route: 048

REACTIONS (3)
  - AGGRESSION [None]
  - PERSONALITY CHANGE [None]
  - FEELING ABNORMAL [None]
